FAERS Safety Report 24635003 (Version 2)
Quarter: 2025Q3

REPORT INFORMATION
  Report Type: Spontaneous
  Country: JP (occurrence: JP)
  Receive Date: 20241119
  Receipt Date: 20250803
  Transmission Date: 20251021
  Serious: Yes (Other)
  Sender: ALEXION PHARMACEUTICALS
  Company Number: JP-ASTRAZENECA-240111071_064320_P_1

PATIENT
  Age: 88 Year
  Sex: Female

DRUGS (4)
  1. ANDEXXA [Suspect]
     Active Substance: ANDEXANET ALFA
     Indication: Subdural haematoma
     Dates: start: 20240816, end: 20240816
  2. ANDEXXA [Suspect]
     Active Substance: ANDEXANET ALFA
     Indication: Subdural haematoma
  3. ELIQUIS [Concomitant]
     Active Substance: APIXABAN
     Dosage: 2.5 MILLIGRAM, BID
     Route: 065
     Dates: start: 20240819
  4. ELIQUIS [Concomitant]
     Active Substance: APIXABAN
     Dosage: 2.5 MILLIGRAM, BID
     Route: 065

REACTIONS (1)
  - Peripheral artery occlusion [Recovering/Resolving]

NARRATIVE: CASE EVENT DATE: 20240820
